FAERS Safety Report 8450769-4 (Version None)
Quarter: 2012Q2

REPORT INFORMATION
  Report Type: 
  Country: None (occurrence: None)
  Receive Date: 20120620
  Receipt Date: 20120612
  Transmission Date: 20120825
  Serious: Yes (Hospitalization)
  Sender: FDA-Public Use
  Company Number: US-ALEXION PHARMACEUTICALS INC.-A201201131

PATIENT
  Sex: Male

DRUGS (12)
  1. PREDNISONE TAB [Concomitant]
     Dosage: 60 MG, QD
     Route: 048
  2. COUMADIN [Concomitant]
     Dosage: 5 MG, QD
  3. VITAMIN B-12 [Concomitant]
     Dosage: UNK
     Route: 030
  4. MULTI-VITAMIN [Concomitant]
     Dosage: UNK, QD
     Route: 048
  5. ASPIRIN [Concomitant]
     Dosage: 81 MG, QD
     Route: 048
  6. METOPROLOL SUCCINATE [Concomitant]
     Dosage: 12.5 MG, QD
     Route: 048
  7. MULTIVITAMINS PLUS IRON [Concomitant]
     Dosage: UNK, QD
     Route: 048
  8. AMBIEN [Concomitant]
     Dosage: UNK, QD
     Route: 048
  9. SOLIRIS [Suspect]
     Indication: PAROXYSMAL NOCTURNAL HAEMOGLOBINURIA
     Dosage: 600 MG, QW X 4
     Route: 042
     Dates: start: 20120329
  10. SOLIRIS [Suspect]
     Dosage: 900 MG, Q2W
     Route: 042
     Dates: start: 20120425
  11. LANOXIN [Concomitant]
     Dosage: 0.125 MG, QD
     Route: 048
  12. LISINOPRIL [Concomitant]
     Dosage: 10 MG, BID
     Route: 048

REACTIONS (2)
  - ASTHENIA [None]
  - FATIGUE [None]
